FAERS Safety Report 4726121-1 (Version None)
Quarter: 2005Q3

REPORT INFORMATION
  Report Type: 
  Country: None (occurrence: None)
  Receive Date: 20050727
  Receipt Date: 20050506
  Transmission Date: 20060218
  Serious: Yes (Disabling)
  Sender: FDA-Public Use
  Company Number: GBWYE653510MAY05

PATIENT
  Sex: Male

DRUGS (5)
  1. ENBREL [Suspect]
     Indication: JUVENILE ARTHRITIS
     Dosage: UNKNOWN
     Route: 058
     Dates: start: 20020813, end: 20050501
  2. BUSCOPAN [Concomitant]
     Dates: start: 20041201
  3. UNSPECIFIED ANABOLIC STEROID [Concomitant]
     Route: 047
     Dates: start: 20020201
  4. ATROPINE [Concomitant]
  5. PREDNISOLONE [Concomitant]
     Dates: start: 20050401

REACTIONS (2)
  - CONDITION AGGRAVATED [None]
  - IRIDOCYCLITIS [None]
